FAERS Safety Report 8240068 (Version 2)
Quarter: 2013Q2

REPORT INFORMATION
  Report Type: Report from Study
  Country: MX (occurrence: MX)
  Receive Date: 20111110
  Receipt Date: 20130621
  Transmission Date: 20140414
  Serious: Yes (Death, Hospitalization, Other)
  Sender: FDA-Public Use
  Company Number: PHHY2011MX098201

PATIENT
  Age: 71 Year
  Sex: Female

DRUGS (4)
  1. DIOVAN [Suspect]
     Indication: HYPERTENSION
     Dosage: 1 DF (80 MG), DAILY
     Route: 048
     Dates: start: 201006
  2. BI-EUGLUCON [Concomitant]
  3. BEDOYECTA [Concomitant]
  4. ENALAPRIL [Concomitant]

REACTIONS (5)
  - Hepatic cirrhosis [Fatal]
  - Intestinal perforation [Fatal]
  - Hepatic rupture [Fatal]
  - Blood disorder [Fatal]
  - Uterine cancer [Recovered/Resolved with Sequelae]
